FAERS Safety Report 7816224-7 (Version None)
Quarter: 2011Q4

REPORT INFORMATION
  Report Type: 
  Country: None (occurrence: None)
  Receive Date: 20111016
  Receipt Date: 20111006
  Transmission Date: 20120403
  Serious: Yes (Hospitalization, Other)
  Sender: FDA-Public Use
  Company Number: US-BAYER-2011-095616

PATIENT
  Sex: Female

DRUGS (2)
  1. COUMADIN [Concomitant]
     Dosage: UNK
     Dates: end: 20110101
  2. YAZ [Suspect]
     Indication: CONTRACEPTION
     Dosage: UNK
     Route: 048
     Dates: start: 20100813, end: 20110101

REACTIONS (1)
  - DEEP VEIN THROMBOSIS [None]
